FAERS Safety Report 9460662 (Version 1)
Quarter: 2013Q3

REPORT INFORMATION
  Report Type: Spontaneous
  Country: GB (occurrence: None)
  Receive Date: 20130813
  Receipt Date: 20130813
  Transmission Date: 20140515
  Serious: Yes (Other)
  Sender: FDA-Public Use
  Company Number: SYM-2013-08261

PATIENT
  Age: 61 Year
  Sex: Female

DRUGS (5)
  1. DILTIAZEM [Suspect]
     Indication: BLOOD PRESSURE
     Route: 048
  2. RIBAVIRIN [Suspect]
     Indication: HEPATITIS C
     Dosage: 2 IN 1 D, ORAL
     Route: 048
     Dates: start: 20130601
  3. INTERFERON ALFA [Suspect]
     Indication: HEPATITIS C
     Dosage: WEEKLY SUBCUTANEOUS
     Route: 058
     Dates: start: 20130601
  4. TELAPREVIR [Suspect]
     Indication: HEPATITIS C
     Dosage: 750MG, 3 IN 1 D, ORAL
     Dates: start: 20130601
  5. RAMIPRIL (RAMIPRIL) (RAMIPRIL) [Concomitant]

REACTIONS (7)
  - Drug interaction [None]
  - Anxiety [None]
  - Nausea [None]
  - Blood pressure increased [None]
  - Irritability [None]
  - Proctalgia [None]
  - Influenza like illness [None]
